FAERS Safety Report 16358402 (Version 1)
Quarter: 2019Q2

REPORT INFORMATION
  Report Type: Spontaneous
  Country: US (occurrence: US)
  Receive Date: 20190418
  Receipt Date: 20190418
  Transmission Date: 20190711
  Serious: Yes (Hospitalization)
  Sender: FDA-Public Use
  Company Number: None

PATIENT
  Age: 45 Year
  Sex: Male
  Weight: 70.8 kg

DRUGS (3)
  1. TEMOZOLOMIDE 50 MG/M2/DAY = 80 MG/DAY, 1120MG TOTAL DOSE [Concomitant]
     Active Substance: TEMOZOLOMIDE
  2. NANOLIPOSOMAL IRINOTECAN 50MG/M2=88.2MG, [Concomitant]
  3. ONIVYDE [Suspect]
     Active Substance: IRINOTECAN HYDROCHLORIDE

REACTIONS (1)
  - Disease progression [None]

NARRATIVE: CASE EVENT DATE: 20181109
